FAERS Safety Report 9337831 (Version 2)
Quarter: 2013Q3

REPORT INFORMATION
  Report Type: Spontaneous
  Country: US (occurrence: US)
  Receive Date: 20130607
  Receipt Date: 20130702
  Transmission Date: 20140515
  Serious: Yes (Hospitalization)
  Sender: FDA-Public Use
  Company Number: US-MERCK-1306USA001923

PATIENT
  Age: 52 Year
  Sex: Female

DRUGS (10)
  1. VICTRELIS [Suspect]
     Dosage: 800 MG, TID
     Route: 048
     Dates: start: 20130404, end: 20130621
  2. REBETOL [Suspect]
     Dosage: 600 MG, UNK
     Route: 048
     Dates: start: 20130307, end: 20130621
  3. PEG-INTRON [Suspect]
     Dosage: UNK MICROGRAM, UNK
     Dates: start: 20130307, end: 20130621
  4. TOPROL XL TABLETS [Concomitant]
     Dosage: UNK MG, UNK
  5. BENAZEPRIL HYDROCHLORIDE (+) HYDROCHLOROTHIAZIDE [Concomitant]
     Dosage: UNK
  6. PREVACID [Concomitant]
     Dosage: 15 UNK, UNK
  7. METFORMIN [Concomitant]
     Dosage: UNK MG, UNK
  8. LEVOTHYROXINE SODIUM [Concomitant]
     Dosage: UNK MICROGRAM, UNK
  9. CLOBEX [Concomitant]
     Dosage: UNK %, UNK
  10. PROZAC [Concomitant]
     Dosage: 10 UNK, UNK

REACTIONS (4)
  - Diarrhoea [Not Recovered/Not Resolved]
  - Dehydration [Unknown]
  - Nausea [Not Recovered/Not Resolved]
  - Adverse event [Not Recovered/Not Resolved]
